FAERS Safety Report 4466234-5 (Version None)
Quarter: 2004Q3

REPORT INFORMATION
  Report Type: 
  Country: None (occurrence: None)
  Receive Date: 20040930
  Receipt Date: 20040908
  Transmission Date: 20050211
  Serious: Yes (Life-Threatening, Hospitalization, Other)
  Sender: FDA-Public Use
  Company Number: 2002-BL-00100BL

PATIENT
  Age: 39 Year
  Sex: Male

DRUGS (2)
  1. VIRAMUNE [Suspect]
     Indication: HIV INFECTION
     Dosage: 400 MG (200 MG, 1 IN 12 HR) PO
     Route: 048
     Dates: start: 20020620, end: 20020721
  2. COMBIVIR (ANTIVIRALS FOR SYSTEMIC USE) (TA) [Concomitant]

REACTIONS (5)
  - HAEMODIALYSIS [None]
  - HEPATITIS TOXIC [None]
  - RENAL FAILURE ACUTE [None]
  - RHABDOMYOLYSIS [None]
  - TOXIC EPIDERMAL NECROLYSIS [None]
